FAERS Safety Report 9219904 (Version 1)
Quarter: 2013Q1

REPORT INFORMATION
  Report Type: Spontaneous
  Country: US (occurrence: None)
  Receive Date: 20120831
  Receipt Date: 20120831
  Transmission Date: 20140127
  Serious: No
  Sender: FDA-Public Use
  Company Number: 1000031272

PATIENT
  Age: 70 Year
  Sex: Male

DRUGS (11)
  1. DALIRESP [Suspect]
     Indication: CHRONIC OBSTRUCTIVE PULMONARY DISEASE
     Route: 048
     Dates: start: 20120423, end: 201206
  2. BUDESONIDE (BUDESONIDE)(BUDESONIDE) [Concomitant]
  3. SINEMET (CARBIDOPA, LEVODOPA) [Concomitant]
  4. COMBIVENT (IPATROPIUM, ALBUTEROL) (IPRATROPIUM, ALBUTEROL) [Concomitant]
  5. LASIX (FUROSEMIDE) (FUROSEMIDE) [Concomitant]
  6. LIPITOR (ATORVASTATIN CALCIUM) (ATORVASTATIN CALCIUM) [Concomitant]
  7. LORTAB (HYDROCODONE, ACETOMINOPHEN) (HYDROCODNE, ACETOMINOPHEN) [Concomitant]
  8. PREVACID (LANSOPRAZOLE) (LANSOPRAZOLE) [Concomitant]
  9. REQUIP (ROPINROLE HYDROCHLORIDE) (ROPIROLE HYDROCHLORIDE) [Concomitant]
  10. VENTOLIN (ALBUTEROL) (ALBUTEROL) [Concomitant]
  11. MULTIVITAMINS (MULTIVITAMINS) (MULTIVITAMINS) [Concomitant]

REACTIONS (1)
  - Diarrhoea [None]
